FAERS Safety Report 12254218 (Version 2)
Quarter: 2016Q2

REPORT INFORMATION
  Report Type: Spontaneous
  Country: IE (occurrence: IE)
  Receive Date: 20160411
  Receipt Date: 20160428
  Transmission Date: 20160815
  Serious: Yes (Life-Threatening)
  Sender: FDA-Public Use
  Company Number: IE-ELI_LILLY_AND_COMPANY-IE201604001755

PATIENT
  Age: 83 Year
  Sex: Female
  Weight: 87 kg

DRUGS (4)
  1. ZYPREXA [Suspect]
     Active Substance: OLANZAPINE
     Indication: PSYCHOTIC DISORDER
     Dosage: 2.5 MG, UNKNOWN
     Route: 048
     Dates: start: 20160315, end: 20160324
  2. CITALOPRAM [Concomitant]
     Active Substance: CITALOPRAM HYDROBROMIDE
     Indication: DEPRESSION
     Dosage: 20 MG, UNKNOWN
     Route: 065
  3. VALSARTAN. [Concomitant]
     Active Substance: VALSARTAN
     Indication: HYPERTENSION
     Dosage: 80 MG, UNKNOWN
     Route: 065
  4. CLONAZEPAM. [Concomitant]
     Active Substance: CLONAZEPAM
     Indication: AGITATION
     Dosage: 0.5 MG, UNKNOWN
     Route: 065

REACTIONS (1)
  - Pulmonary embolism [Not Recovered/Not Resolved]

NARRATIVE: CASE EVENT DATE: 20160323
